FAERS Safety Report 6432644-X (Version None)
Quarter: 2009Q4

REPORT INFORMATION
  Report Type: 
  Country: None (occurrence: None)
  Receive Date: 20091109
  Receipt Date: 20091102
  Transmission Date: 20100525
  Serious: Yes (Hospitalization)
  Sender: FDA-Public Use
  Company Number: US-ELI_LILLY_AND_COMPANY-US200909005337

PATIENT
  Sex: Male
  Weight: 101.13 kg

DRUGS (10)
  1. BYETTA [Suspect]
     Indication: TYPE 2 DIABETES MELLITUS
     Dosage: 10 UG, 2/D
     Route: 058
     Dates: start: 20050101
  2. TOLAZAMIDE [Concomitant]
  3. METFORMIN [Concomitant]
  4. ASPIRIN [Concomitant]
  5. HYDROCHLOROTHIAZIDE [Concomitant]
  6. MICARDIS HCT [Concomitant]
  7. LISINOPRIL [Concomitant]
  8. TERAZOSIN HCL [Concomitant]
  9. CRESTOR [Concomitant]
  10. CLONIDINE [Concomitant]

REACTIONS (3)
  - ARRHYTHMIA [None]
  - BLOOD GLUCOSE DECREASED [None]
  - DRUG INTERACTION [None]
